FAERS Safety Report 8578603 (Version 4)
Quarter: 2014Q2

REPORT INFORMATION
  Report Type: Spontaneous
  Country: US (occurrence: US)
  Receive Date: 20120524
  Receipt Date: 20140410
  Transmission Date: 20141212
  Serious: Yes (Hospitalization, Other)
  Sender: FDA-Public Use
  Company Number: US-ASTRAZENECA-2012SE31404

PATIENT
  Age: 640 Month
  Sex: Male
  Weight: 99.8 kg

DRUGS (10)
  1. SEROQUEL XR [Suspect]
     Indication: BIPOLAR DISORDER
     Route: 048
  2. SEROQUEL XR [Suspect]
     Indication: BIPOLAR I DISORDER
     Route: 048
  3. SEROQUEL XR [Suspect]
     Indication: BIPOLAR DISORDER
     Route: 048
     Dates: start: 2009
  4. SEROQUEL XR [Suspect]
     Indication: BIPOLAR I DISORDER
     Route: 048
     Dates: start: 2009
  5. NEXIUM [Suspect]
     Indication: GASTROOESOPHAGEAL REFLUX DISEASE
     Route: 048
  6. NEXIUM [Suspect]
     Indication: GASTROOESOPHAGEAL REFLUX DISEASE
     Route: 048
     Dates: end: 201403
  7. CYMBALTA [Concomitant]
     Indication: BIPOLAR DISORDER
  8. CYMBALTA [Concomitant]
     Indication: BIPOLAR DISORDER
  9. CYMBALTA [Concomitant]
     Indication: BIPOLAR DISORDER
     Route: 048
     Dates: start: 2006
  10. TEGRETOL [Concomitant]
     Indication: BIPOLAR DISORDER
     Route: 048
     Dates: start: 2004

REACTIONS (7)
  - Femur fracture [Unknown]
  - Neoplasm malignant [Unknown]
  - Feeling abnormal [Unknown]
  - Regurgitation [Unknown]
  - Erosive oesophagitis [Unknown]
  - Intentional product misuse [Unknown]
  - Drug dose omission [Unknown]
